FAERS Safety Report 15906264 (Version 12)
Quarter: 2019Q4

REPORT INFORMATION
  Report Type: Spontaneous
  Country: BR (occurrence: BR)
  Receive Date: 20190204
  Receipt Date: 20191029
  Transmission Date: 20200122
  Serious: Yes (Hospitalization, Other)
  Sender: FDA-Public Use
  Company Number: BR-GLAXOSMITHKLINE-BR2019GSK016325

PATIENT
  Age: 41 Year
  Sex: Female

DRUGS (4)
  1. SPIRIVA [Concomitant]
     Active Substance: TIOTROPIUM BROMIDE MONOHYDRATE
     Indication: PRODUCT USED FOR UNKNOWN INDICATION
     Dosage: UNK
  2. NUCALA [Suspect]
     Active Substance: MEPOLIZUMAB
     Indication: ASTHMA
     Dosage: 100 MG, UNK
     Dates: start: 20181221, end: 20190725
  3. NUCALA [Suspect]
     Active Substance: MEPOLIZUMAB
     Indication: BRONCHIECTASIS
  4. NUCALA [Suspect]
     Active Substance: MEPOLIZUMAB
     Indication: ASPERGILLUS INFECTION

REACTIONS (8)
  - Inappropriate schedule of product administration [Recovered/Resolved]
  - Pneumonia [Recovered/Resolved]
  - Bronchopulmonary aspergillosis [Unknown]
  - Urinary tract infection [Recovered/Resolved]
  - Pneumonia [Recovered/Resolved]
  - Product dose omission [Not Recovered/Not Resolved]
  - Nasopharyngitis [Unknown]
  - Influenza [Unknown]

NARRATIVE: CASE EVENT DATE: 20190902
